FAERS Safety Report 20551787 (Version 1)
Quarter: 2022Q1

REPORT INFORMATION
  Report Type: Spontaneous
  Country: CO (occurrence: CO)
  Receive Date: 20220304
  Receipt Date: 20220304
  Transmission Date: 20220423
  Serious: Yes (Other)
  Sender: FDA-Public Use
  Company Number: CO-PFIZER INC-2021676595

PATIENT
  Age: 56 Year
  Sex: Female

DRUGS (1)
  1. PALBOCICLIB [Suspect]
     Active Substance: PALBOCICLIB
     Indication: Breast cancer metastatic
     Dosage: 125 MG, DAILY
     Route: 048

REACTIONS (7)
  - Calcinosis [Unknown]
  - Neoplasm progression [Unknown]
  - Influenza [Unknown]
  - Decreased immune responsiveness [Unknown]
  - General physical health deterioration [Unknown]
  - Decreased appetite [Unknown]
  - Insomnia [Unknown]

NARRATIVE: CASE EVENT DATE: 20210801
